FAERS Safety Report 8171114 (Version 10)
Quarter: 2015Q1

REPORT INFORMATION
  Report Type: Report from Study
  Country: IL (occurrence: IL)
  Receive Date: 20111006
  Receipt Date: 20150224
  Transmission Date: 20150721
  Serious: Yes (Life-Threatening, Hospitalization)
  Sender: FDA-Public Use
  Company Number: IL-ROCHE-798011

PATIENT
  Age: 43 Year
  Sex: Male
  Weight: 93 kg

DRUGS (7)
  1. VEMURAFENIB [Suspect]
     Active Substance: VEMURAFENIB
     Route: 048
  2. TOPISALEN OINTMENT [Concomitant]
     Active Substance: FLUMETHASONE PIVALATE
     Route: 065
     Dates: start: 20110711
  3. VEMURAFENIB [Suspect]
     Active Substance: VEMURAFENIB
     Indication: METASTATIC MALIGNANT MELANOMA
     Dosage: DOSE REDUCED LAST DOSE BEFORE SAE: 17/AUG/2011
     Route: 048
     Dates: start: 20110721, end: 20110818
  4. CLOZAPINE. [Concomitant]
     Active Substance: CLOZAPINE
  5. CALCIPOTRIENE OINTMENT [Concomitant]
     Active Substance: CALCIPOTRIENE
     Route: 065
     Dates: start: 20110711
  6. PRAVASTATIN SODIUM. [Concomitant]
     Active Substance: PRAVASTATIN SODIUM
     Route: 065
     Dates: start: 20090701
  7. CLONAZEPAM. [Concomitant]
     Active Substance: CLONAZEPAM

REACTIONS (1)
  - Hyperuricaemia [Recovered/Resolved]

NARRATIVE: CASE EVENT DATE: 20110818
